FAERS Safety Report 7428969-1 (Version None)
Quarter: 2011Q2

REPORT INFORMATION
  Report Type: 
  Country: None (occurrence: None)
  Receive Date: 20110421
  Receipt Date: 20110420
  Transmission Date: 20111010
  Serious: Yes (Hospitalization)
  Sender: FDA-Public Use
  Company Number: JP-EISAI INC-E2020-08979-SPO-JP

PATIENT
  Age: 79 Year
  Sex: Female

DRUGS (2)
  1. ARICEPT [Suspect]
     Dosage: UNKNOWN
     Route: 048
     Dates: end: 20110413
  2. ARICEPT [Suspect]
     Route: 048
     Dates: start: 20110414

REACTIONS (3)
  - MIOSIS [None]
  - VOMITING [None]
  - OVERDOSE [None]
